FAERS Safety Report 17397395 (Version 1)
Quarter: 2020Q1

REPORT INFORMATION
  Report Type: Spontaneous
  Country: ES (occurrence: ES)
  Receive Date: 20200210
  Receipt Date: 20200210
  Transmission Date: 20200409
  Serious: Yes (Other)
  Sender: FDA-Public Use
  Company Number: ES-009507513-2002ESP002817

PATIENT
  Sex: Female

DRUGS (1)
  1. NUVARING [Suspect]
     Active Substance: ETHINYL ESTRADIOL\ETONOGESTREL
     Dosage: 1 RING, CYCLICAL
     Dates: start: 2018

REACTIONS (4)
  - Pregnancy with contraceptive device [Unknown]
  - Abortion spontaneous [Unknown]
  - Device malfunction [Unknown]
  - Unintended pregnancy [Recovered/Resolved]
